FAERS Safety Report 8056348-5 (Version None)
Quarter: 2012Q1

REPORT INFORMATION
  Report Type: 
  Country: None (occurrence: None)
  Receive Date: 20120119
  Receipt Date: 20120109
  Transmission Date: 20120608
  Serious: Yes (Other)
  Sender: FDA-Public Use
  Company Number: US-ELI_LILLY_AND_COMPANY-US201106007415

PATIENT
  Sex: Female

DRUGS (5)
  1. FORTEO [Suspect]
     Indication: OSTEOPOROSIS
     Dosage: 20 UG, QD
     Route: 058
  2. CELEBREX [Concomitant]
  3. FORTEO [Suspect]
     Dosage: 20 UG, QD
     Route: 058
  4. WARFARIN SODIUM [Concomitant]
  5. FORTEO [Suspect]
     Dosage: 20 UG, QD
     Route: 058
     Dates: end: 20111201

REACTIONS (9)
  - ARTHRITIS [None]
  - INTERNATIONAL NORMALISED RATIO DECREASED [None]
  - SURGERY [None]
  - INJECTION SITE HAEMATOMA [None]
  - CONTUSION [None]
  - CAUDA EQUINA SYNDROME [None]
  - INJECTION SITE HAEMORRHAGE [None]
  - LIMB DISCOMFORT [None]
  - PAIN [None]
